FAERS Safety Report 11289805 (Version 1)
Quarter: 2015Q3

REPORT INFORMATION
  Report Type: Spontaneous
  Country: US (occurrence: US)
  Receive Date: 20150721
  Receipt Date: 20150721
  Transmission Date: 20151125
  Serious: No
  Sender: FDA-Public Use
  Company Number: US-PFIZER INC-2015238792

PATIENT
  Age: 71 Year
  Sex: Female

DRUGS (3)
  1. LEXAPRO [Suspect]
     Active Substance: ESCITALOPRAM OXALATE
     Indication: FIBROMYALGIA
     Dosage: UNK
  2. PAXIL [Suspect]
     Active Substance: PAROXETINE HYDROCHLORIDE
     Indication: FIBROMYALGIA
     Dosage: UNK
  3. ZOLOFT [Suspect]
     Active Substance: SERTRALINE HYDROCHLORIDE
     Indication: FIBROMYALGIA
     Dosage: UNK

REACTIONS (2)
  - Drug ineffective [Unknown]
  - Product use issue [Unknown]
